FAERS Safety Report 13101238 (Version 1)
Quarter: 2017Q1

REPORT INFORMATION
  Report Type: Spontaneous
  Country: US (occurrence: US)
  Receive Date: 20170110
  Receipt Date: 20170110
  Transmission Date: 20170428
  Serious: Yes (Other)
  Sender: FDA-Public Use
  Company Number: US-BAYER-2017-001890

PATIENT
  Age: 73 Year
  Sex: Male
  Weight: 91 kg

DRUGS (2)
  1. ALKA-SELTZER PLUS SEVERE SINUS CONGESTION AND COUGH [Suspect]
     Active Substance: ACETAMINOPHEN\DEXTROMETHORPHAN HYDROBROMIDE\PHENYLEPHRINE HYDROCHLORIDE
     Indication: HYPERSENSITIVITY
     Dosage: 1 DF, UNK
     Route: 048
     Dates: start: 20161229, end: 20161229
  2. ALKA-SELTZER PLUS SEVERE SINUS CONGESTION AND COUGH [Suspect]
     Active Substance: ACETAMINOPHEN\DEXTROMETHORPHAN HYDROBROMIDE\PHENYLEPHRINE HYDROCHLORIDE
     Indication: NASOPHARYNGITIS

REACTIONS (4)
  - Product use issue [Unknown]
  - Dyspnoea [Recovered/Resolved]
  - Foreign body [Recovered/Resolved]
  - Wrong technique in product usage process [Unknown]

NARRATIVE: CASE EVENT DATE: 20161229
